FAERS Safety Report 5363101-X (Version None)
Quarter: 2007Q2

REPORT INFORMATION
  Report Type: 
  Country: None (occurrence: None)
  Receive Date: 20070615
  Receipt Date: 20070605
  Transmission Date: 20071010
  Serious: Yes (Hospitalization)
  Sender: FDA-Public Use
  Company Number: MIN-00187

PATIENT
  Age: 31 Year
  Sex: Female

DRUGS (1)
  1. MINOCYCLINE HCL [Suspect]
     Indication: ACNE
     Dosage: UNK., UNK., PO
     Route: 048

REACTIONS (12)
  - BRAIN OEDEMA [None]
  - CYTOLYTIC HEPATITIS [None]
  - DRUG HYPERSENSITIVITY [None]
  - DRUG RASH WITH EOSINOPHILIA AND SYSTEMIC SYMPTOMS [None]
  - EOSINOPHILIA [None]
  - FACE OEDEMA [None]
  - HEART RATE INCREASED [None]
  - LEUKOCYTOSIS [None]
  - LYMPHADENOPATHY [None]
  - MENINGITIS [None]
  - NEUTROPHILIA [None]
  - RESPIRATORY RATE INCREASED [None]
